FAERS Safety Report 8770972 (Version 1)
Quarter: 2012Q4

REPORT INFORMATION
  Report Type: 
  Country: FR (occurrence: FR)
  Receive Date: 20120906
  Receipt Date: 20120906
  Transmission Date: 20130627
  Serious: Yes (Hospitalization)
  Sender: FDA-Public Use
  Company Number: FR-EISAI INC-E2020-06188-SPO-FR

PATIENT
  Age: 89 Year
  Sex: Female

DRUGS (7)
  1. ARICEPT [Suspect]
     Indication: ALZHEIMER^S DISEASE
     Route: 048
     Dates: end: 2010
  2. TEMERIT [Suspect]
     Indication: BLOOD PRESSURE HIGH
     Route: 048
     Dates: end: 2010
  3. RISPERIDONE [Concomitant]
     Route: 048
  4. FUROSEMIDE [Concomitant]
     Route: 048
  5. PREVISCAN [Concomitant]
     Route: 048
  6. RAMIPRIL [Concomitant]
     Route: 048
  7. ADANCOR [Concomitant]

REACTIONS (3)
  - Bradycardia [Recovered/Resolved]
  - Malaise [Recovered/Resolved]
  - Hypotension [Recovered/Resolved]
